FAERS Safety Report 5484617-1 (Version None)
Quarter: 2007Q4

REPORT INFORMATION
  Report Type: 
  Country: None (occurrence: None)
  Receive Date: 20071012
  Receipt Date: 20071002
  Transmission Date: 20080405
  Serious: Yes (Hospitalization, Other)
  Sender: FDA-Public Use
  Company Number: US-PFIZER INC-2007083322

PATIENT
  Sex: Female
  Weight: 71.7 kg

DRUGS (3)
  1. CHANTIX [Suspect]
     Indication: SMOKING CESSATION THERAPY
  2. LEXAPRO [Concomitant]
  3. VYTORIN [Concomitant]

REACTIONS (8)
  - ANAEMIA [None]
  - BREAST OPERATION [None]
  - HAEMOGLOBIN DECREASED [None]
  - PLEURITIC PAIN [None]
  - PROTHROMBIN TIME PROLONGED [None]
  - PROTHROMBIN TIME SHORTENED [None]
  - PULMONARY EMBOLISM [None]
  - SURGERY [None]
